FAERS Safety Report 5240695-6 (Version None)
Quarter: 2007Q1

REPORT INFORMATION
  Report Type: 
  Country: None (occurrence: None)
  Receive Date: 20061208
  Receipt Date: 20051013
  Transmission Date: 20070707
  Serious: Yes (Other)
  Sender: FDA-Public Use
  Company Number: 2005UW15517

PATIENT
  Age: 50 Year
  Sex: Female

DRUGS (4)
  1. CRESTOR [Suspect]
     Dosage: 20 MG QD PO
     Route: 048
  2. CRESTOR [Suspect]
     Dosage: 10 MG QD PO
     Route: 048
  3. ALBUTEROL [Concomitant]
  4. ALLOPURINOL [Concomitant]

REACTIONS (1)
  - GOUT [None]
